FAERS Safety Report 7389108-9 (Version None)
Quarter: 2011Q2

REPORT INFORMATION
  Report Type: 
  Country: None (occurrence: None)
  Receive Date: 20110401
  Receipt Date: 20101015
  Transmission Date: 20111010
  Serious: Yes (Hospitalization, Other)
  Sender: FDA-Public Use
  Company Number: US-BAYER-201023511NA

PATIENT
  Sex: Female
  Weight: 87.075 kg

DRUGS (13)
  1. TOPROL-XL [Concomitant]
     Indication: HYPERTENSION
     Dosage: UNK
     Dates: start: 20030701
  2. DIOVAN [HYDROCHLOROTHIAZIDE,VALSARTAN] [Concomitant]
     Indication: HYPERTENSION
     Dosage: UNK
     Dates: start: 20000101
  3. ESZOPICLONE [Concomitant]
     Indication: INSOMNIA
     Dosage: UNK
     Dates: start: 20070101
  4. UNCODEABLE ^UNCLASSIFIABLE^ [Concomitant]
     Indication: BLOOD POTASSIUM DECREASED
     Dosage: UNK
     Dates: start: 20000101
  5. UNCODEABLE ^UNCLASSIFIABLE^ [Concomitant]
     Dosage: UNK
     Dates: start: 20070904, end: 20070904
  6. AMILORIDE HYDROCHLORIDE [Concomitant]
     Indication: HYPERTENSION
     Dosage: UNK
     Dates: start: 20030101
  7. YASMIN [Suspect]
     Dosage: UNK
     Route: 048
     Dates: start: 20061001, end: 20071101
  8. NORVASC [Concomitant]
     Indication: HYPERTENSION
     Dosage: UNK
     Dates: start: 20030701
  9. ALBUTEROL [Concomitant]
     Dosage: UNK
     Dates: start: 20040201, end: 20090501
  10. TRIAMTEREN HCT [Concomitant]
     Indication: HYPERTENSION
     Dosage: UNK
     Dates: start: 20050301, end: 20090101
  11. DIOVAN [Concomitant]
     Indication: HYPERTENSION
     Dosage: UNK
     Dates: start: 20000101
  12. SPIRONOLACTONE [Concomitant]
     Dosage: UNK
     Dates: start: 20050301, end: 20090101
  13. XANAX [Concomitant]
     Indication: DEPRESSION
     Dosage: UNK
     Dates: start: 20070101

REACTIONS (8)
  - CHEST PAIN [None]
  - PULMONARY INFARCTION [None]
  - PULMONARY EMBOLISM [None]
  - PLEURITIC PAIN [None]
  - DYSPNOEA [None]
  - BACK PAIN [None]
  - OEDEMA PERIPHERAL [None]
  - DEEP VEIN THROMBOSIS [None]
